FAERS Safety Report 18700017 (Version 4)
Quarter: 2021Q1

REPORT INFORMATION
  Report Type: Report from Study
  Country: KR (occurrence: KR)
  Receive Date: 20210105
  Receipt Date: 20210218
  Transmission Date: 20210419
  Serious: Yes (Death, Hospitalization, Other)
  Sender: FDA-Public Use
  Company Number: KR-CELLTRION INC.-2020KR034732

PATIENT

DRUGS (102)
  1. HERZUMA [Suspect]
     Active Substance: TRASTUZUMAB-PKRB
     Indication: BILE DUCT CANCER
     Dosage: 6 MG/KG (300 MG)
     Route: 042
     Dates: start: 20201211
  2. URSA [URSODEOXYCHOLIC ACID] [Concomitant]
     Dosage: 100 MG, TID
     Route: 048
     Dates: start: 20210116, end: 20210118
  3. DEXAMETASONE [DEXAMETHASONE] [Concomitant]
     Indication: ALLERGY PROPHYLAXIS
     Dosage: 8 MG, PRN
     Route: 048
     Dates: start: 20201212, end: 20210111
  4. TANTUM [BENZYDAMINE HYDROCHLORIDE] [Concomitant]
     Indication: PROPHYLAXIS
     Dosage: 100 ML, PRN
     Route: 048
     Dates: start: 20201226
  5. SODIUM BICARBONATE. [Concomitant]
     Active Substance: SODIUM BICARBONATE
     Indication: HYPONATRAEMIA
     Dosage: 40 MEQ
     Dates: start: 20210120, end: 20210123
  6. ADELAVIN NO.9 [Concomitant]
     Indication: HEPATIC FAILURE
  7. PENIRAMIN [Concomitant]
     Indication: ALLERGY PROPHYLAXIS
     Dosage: 4 MG, SINGLE
     Route: 042
     Dates: start: 20210105, end: 20210105
  8. PENIRAMIN [Concomitant]
     Dosage: 4 MG, ONCE
     Route: 042
     Dates: start: 20210115, end: 20210115
  9. MACPERAN [METOCLOPRAMIDE] [Concomitant]
     Indication: VOMITING
  10. NORPIN [NOREPINEPHRINE BITARTRATE] [Concomitant]
     Indication: HYPOTENSION
     Dosage: 40 MG, QD
     Route: 042
     Dates: start: 20210117, end: 20210124
  11. IRRADIATED FILTERED PLT [Concomitant]
     Dosage: 6 UNITS, ONCE
     Route: 042
     Dates: start: 20210116, end: 20210116
  12. TAPOCIN [Concomitant]
     Indication: BACTERAEMIA
  13. OXALITIN [Suspect]
     Active Substance: OXALIPLATIN
     Dosage: 80.5 MILLIGRAM
     Route: 042
     Dates: start: 20210108
  14. LEUCOVORIN [CALCIUM FOLINATE] [Suspect]
     Active Substance: LEUCOVORIN
     Indication: BILE DUCT CANCER
     Dosage: 200 MG/M2 (294 MG)
     Route: 042
     Dates: start: 20201211
  15. LEUCOVORIN [CALCIUM FOLINATE] [Suspect]
     Active Substance: LEUCOVORIN
     Dosage: 322 MILLIGRAM
     Route: 042
     Dates: start: 20210108
  16. GODEX [Concomitant]
     Indication: HEPATIC FAILURE
  17. MEGACE F [MEGESTROL ACETATE] [Concomitant]
     Indication: DECREASED APPETITE
     Dosage: 5 ML, QD
     Route: 048
     Dates: start: 20201216
  18. LASIX [Concomitant]
     Active Substance: FUROSEMIDE
     Dosage: 80 MG, PRN
     Route: 042
     Dates: start: 20210121, end: 20210124
  19. TYLENOL ER [ACETAMINOPHEN] [Concomitant]
     Indication: PYREXIA
     Dosage: 1300 MG, PRN
     Route: 048
     Dates: start: 20201226
  20. DEXILANT DR [DEXLANSOPRAZOLE] [Concomitant]
     Indication: GASTRIC ULCER
     Dosage: 30 MG, QD
     Route: 048
     Dates: start: 20201226, end: 20201230
  21. ALDACTONE [Concomitant]
     Active Substance: SPIRONOLACTONE
     Indication: GENERALISED OEDEMA
     Dosage: 50 MG, QD
     Route: 048
     Dates: start: 20201230, end: 20201231
  22. ADELAVIN NO.9 [Concomitant]
     Indication: ASPARTATE AMINOTRANSFERASE INCREASED
     Dosage: 2 ML, QD
     Route: 042
     Dates: start: 20210104, end: 20210116
  23. COMBIFLEX PERI [Concomitant]
     Indication: DECREASED APPETITE
     Dosage: 1100 ML, QD
     Route: 042
     Dates: start: 20210116, end: 20210120
  24. MUCOMYST [Concomitant]
     Active Substance: ACETYLCYSTEINE
     Indication: PROPHYLAXIS
     Dosage: 800 MG, TID NEBULIZER
     Dates: start: 20210119, end: 20210122
  25. IRRADIATED FILTERED RBC [Concomitant]
     Indication: ANAEMIA
     Dosage: 1 UNIT, ONCE
     Route: 042
     Dates: start: 20210114, end: 20210114
  26. IRRADIATED FILTERED PLT [Concomitant]
     Indication: PLATELET COUNT DECREASED
     Dosage: 6 UNITS, ONCE
     Route: 042
     Dates: start: 20210115, end: 20210115
  27. OXALITIN [Suspect]
     Active Substance: OXALIPLATIN
     Dosage: 50 MG/M2 (73.5 MG)
     Route: 042
     Dates: start: 20201223, end: 20201223
  28. URSA [URSODEOXYCHOLIC ACID] [Concomitant]
     Indication: ASPARTATE AMINOTRANSFERASE INCREASED
     Dosage: 100 MG, TID
     Route: 048
     Dates: start: 20201116, end: 20210104
  29. LASIX [Concomitant]
     Active Substance: FUROSEMIDE
     Dosage: 120 MG, ONCE
     Route: 042
     Dates: start: 20210119, end: 20210119
  30. LASIX [Concomitant]
     Active Substance: FUROSEMIDE
     Dosage: 160 MG, SINGLE
     Route: 042
     Dates: start: 20210123, end: 20210123
  31. SANCUSO [GRANISETRON] [Concomitant]
     Indication: NAUSEA
     Dosage: 1 DF, 1/WEEK
     Dates: start: 20201226, end: 20210118
  32. PENIRAMIN [Concomitant]
     Dosage: 4 MG, ONCE
     Route: 042
     Dates: start: 20210116, end: 20210116
  33. ATIVAN [Concomitant]
     Active Substance: LORAZEPAM
     Indication: ANXIETY
  34. OMAPONE PERI [Concomitant]
     Indication: DECREASED APPETITE
     Dosage: 500 ML, QD
     Route: 042
     Dates: start: 20210109, end: 20210116
  35. OMAPONE PERI [Concomitant]
     Dosage: 500 ML, QD
     Route: 042
     Dates: start: 20210120, end: 20210121
  36. CORTISOLU [Concomitant]
     Active Substance: HYDROCORTISONE SODIUM SUCCINATE
     Indication: GASTRIC ULCER
     Dosage: 50 MG, QID
     Route: 042
     Dates: start: 20210118, end: 20210124
  37. MUCOMYST [Concomitant]
     Active Substance: ACETYLCYSTEINE
     Indication: PRODUCTIVE COUGH
  38. FREEPAN [SCOPOLAMINE BUTYLBROMIDE] [Concomitant]
     Indication: PREMEDICATION
     Dosage: 40 MG, ONCE
     Route: 042
     Dates: start: 20210119, end: 20210119
  39. TAZOPERAN [Concomitant]
     Indication: BILIARY TRACT INFECTION
     Dosage: 4.5 G, QID
     Route: 042
     Dates: start: 20210107, end: 20210116
  40. IR CODON [OXYCODONE HYDROCHLORIDE] [Concomitant]
     Indication: ABDOMINAL PAIN
     Dosage: 5 MG, PRN
     Route: 048
     Dates: start: 20201130, end: 20210118
  41. IR CODON [OXYCODONE HYDROCHLORIDE] [Concomitant]
     Indication: BACK PAIN
  42. DEXAMETASONE [DEXAMETHASONE DISODIUM PHOSPHATE] [Concomitant]
     Indication: ALLERGY PROPHYLAXIS
     Dosage: 12 MG, PRN
     Route: 042
     Dates: start: 20201211, end: 20210108
  43. NASEA OD [RAMOSETRON HYDROCHLORIDE] [Concomitant]
     Indication: PROPHYLAXIS OF NAUSEA AND VOMITING
     Dosage: 0.1 MG, PRN
     Route: 048
     Dates: start: 20201223, end: 20210108
  44. LASIX [Concomitant]
     Active Substance: FUROSEMIDE
     Dosage: 40 MG, PRN
     Route: 042
     Dates: start: 20210119, end: 20210123
  45. SODIUM BICARBONATE. [Concomitant]
     Active Substance: SODIUM BICARBONATE
     Indication: STOMATITIS
     Dosage: 60 MEQ, PRN
     Route: 042
     Dates: start: 20210105
  46. MACPERAN [METOCLOPRAMIDE] [Concomitant]
     Indication: VOMITING
  47. FLUNAZOLE [FLUCONAZOLE] [Concomitant]
     Indication: BILIARY TRACT INFECTION
     Dosage: 100 MG, BID
     Route: 048
     Dates: start: 20201226, end: 20201230
  48. ALDACTONE [Concomitant]
     Active Substance: SPIRONOLACTONE
     Dosage: 100 MG, PRN
     Route: 042
     Dates: start: 20210101
  49. HUMAN SERUM ALBUMIN [Concomitant]
     Active Substance: ALBUMIN HUMAN
     Indication: HYPOALBUMINAEMIA
     Dosage: 100 ML, PRN
     Route: 042
     Dates: start: 20210104, end: 20210121
  50. NEXIUM I.V. [Concomitant]
     Active Substance: ESOMEPRAZOLE SODIUM
     Indication: GASTRIC ULCER
     Dosage: 80 MG, ONCE
     Route: 042
     Dates: start: 20210118, end: 20210118
  51. IRRADIATED FILTERED APHARESIS PLATELET [Concomitant]
     Dosage: 3 UNIT, ONCE
     Route: 042
     Dates: start: 20210123, end: 20210123
  52. HERZUMA [Suspect]
     Active Substance: TRASTUZUMAB-PKRB
     Dosage: 4 MG/KG (200 MG)
     Route: 042
     Dates: start: 20201223, end: 20201223
  53. HERZUMA [Suspect]
     Active Substance: TRASTUZUMAB-PKRB
     Dosage: 260 MILLIGRAM
     Route: 042
     Dates: start: 20210108
  54. MUCOSTA [REBAMIPIDE] [Concomitant]
     Indication: DYSPEPSIA
     Dosage: 100 MG, TID
     Route: 048
     Dates: start: 20201201, end: 20210121
  55. TARGIN CR [NALOXONE HYDROCHLORIDE DIHYDRATE, OXYCODONE HYDROCHLORIDE] [Concomitant]
     Indication: BACK PAIN
     Dosage: 1 TAB, BID
     Route: 048
     Dates: start: 20201230, end: 20210115
  56. EMEND [FOSAPREPITANT DIMEGLUMINE] [Concomitant]
     Indication: PROPHYLAXIS OF NAUSEA AND VOMITING
     Dosage: 150 MG, PRN
     Route: 042
     Dates: start: 20201223, end: 20210108
  57. LASIX [Concomitant]
     Active Substance: FUROSEMIDE
     Indication: BLOOD CREATININE INCREASED
     Dosage: 20 MG, PRN
     Route: 042
     Dates: start: 20210104, end: 20210121
  58. BANAN [CEFPODOXIME PROXETIL] [Concomitant]
     Indication: BILIARY TRACT INFECTION
     Dosage: 200 MG, BID
     Route: 048
     Dates: start: 20201226, end: 20201230
  59. MACPERAN [METOCLOPRAMIDE] [Concomitant]
     Indication: NAUSEA
     Dosage: 5 MG, PRN
     Route: 048
     Dates: start: 20201226
  60. ADELAVIN NO.9 [Concomitant]
     Indication: PROPHYLAXIS
  61. PENIRAMIN [Concomitant]
     Dosage: 4 MG, ONCE
     Route: 042
     Dates: start: 20210118, end: 20210118
  62. PENIRAMIN [Concomitant]
     Dosage: 4 MG, ONCE
     Route: 042
     Dates: start: 20210119, end: 20210119
  63. PROFA [Concomitant]
     Indication: PYREXIA
     Dosage: 1 GRAM, PRN
     Route: 042
     Dates: start: 20210117, end: 20210124
  64. NEXIUM I.V. [Concomitant]
     Active Substance: ESOMEPRAZOLE SODIUM
     Dosage: 200 MG, QD
     Route: 042
     Dates: start: 20210118, end: 20210121
  65. MORPHINE SULFATE. [Concomitant]
     Active Substance: MORPHINE SULFATE
     Indication: BACK PAIN
     Dosage: 5 MG, PRN
     Route: 042
     Dates: start: 20210119, end: 20210122
  66. MORPHINE SULFATE. [Concomitant]
     Active Substance: MORPHINE SULFATE
     Dosage: 60 MG, QD
     Route: 042
     Dates: start: 20210123, end: 20210124
  67. IRRADIATED FILTERED PLT [Concomitant]
     Dosage: 6 UNITS, ONCE
     Route: 042
     Dates: start: 20210118, end: 20210118
  68. IRRADIATED FILTERED PLT [Concomitant]
     Dosage: 6 UNITS, ONCE
     Route: 042
     Dates: start: 20210119, end: 20210119
  69. IRRADIATED FILTERED PLT [Concomitant]
     Dosage: 3 UNITS, ONCE
     Route: 042
     Dates: start: 20210119, end: 20210119
  70. K DOWN SUSP [Concomitant]
     Indication: HYPERKALAEMIA
     Dosage: 120 ML, PERRECTAL ONCE
     Route: 054
     Dates: start: 20210123, end: 20210123
  71. TAPOCIN [Concomitant]
     Indication: BILIARY TRACT INFECTION
     Dosage: 400 MG, BID
     Route: 042
     Dates: start: 20210118, end: 20210124
  72. 5?FU [FLUOROURACIL] [Suspect]
     Active Substance: FLUOROURACIL
     Dosage: 1500 MG/M2 (2205 MG)
     Route: 042
     Dates: start: 20201223, end: 20201223
  73. 5?FU [FLUOROURACIL] [Suspect]
     Active Substance: FLUOROURACIL
     Dosage: 1500 MILLIGRAM Q2WEEKS
     Route: 042
     Dates: start: 20210108
  74. TARGIN CR [NALOXONE HYDROCHLORIDE DIHYDRATE, OXYCODONE HYDROCHLORIDE] [Concomitant]
     Indication: ABDOMINAL PAIN
     Dosage: 1 TAB, BID
     Route: 048
     Dates: start: 20201215, end: 20201230
  75. CRAVIT [LEVOFLOXACIN] [Concomitant]
     Indication: BILIARY TRACT INFECTION
     Dosage: 750 MG, QD
     Route: 048
     Dates: start: 20201226, end: 20201230
  76. LASIX [Concomitant]
     Active Substance: FUROSEMIDE
     Indication: GENERALISED OEDEMA
     Dosage: 40 MG, PRN
     Route: 048
     Dates: start: 20201226, end: 20210122
  77. LASIX [Concomitant]
     Active Substance: FUROSEMIDE
     Dosage: 60 MG, PRN
     Route: 042
     Dates: start: 20210122
  78. SODIUM BICARBONATE. [Concomitant]
     Active Substance: SODIUM BICARBONATE
     Indication: PROPHYLAXIS
     Dosage: 10 G, PRN
     Route: 048
     Dates: start: 20201226
  79. TRIDOL [Concomitant]
     Active Substance: TRAMADOL HYDROCHLORIDE
     Indication: PREMEDICATION
     Dosage: 50 MG, ONCE
     Route: 042
     Dates: start: 20210113, end: 20210113
  80. IRRADIATED FILTERED RBC [Concomitant]
     Dosage: 1 UNIT, ONCE
     Route: 042
     Dates: start: 20210121, end: 20210121
  81. GLYPRESSIN [Concomitant]
     Active Substance: TERLIPRESSIN
     Indication: BLOOD CREATININE INCREASED
     Dosage: 1 MG, QID
     Route: 042
     Dates: start: 20210122, end: 20210124
  82. LEUCOVORIN [CALCIUM FOLINATE] [Suspect]
     Active Substance: LEUCOVORIN
     Dosage: 200 MG/M2 (294 MG)
     Route: 042
     Dates: start: 20201223, end: 20201223
  83. NORVASC [AMLODIPINE BESYLATE] [Concomitant]
     Indication: HYPERTENSION
     Dosage: 5 MG, QD
     Route: 048
     Dates: start: 20201123, end: 20201230
  84. GASTER [Concomitant]
     Active Substance: FAMOTIDINE
     Indication: PROPHYLAXIS AGAINST GASTROINTESTINAL ULCER
     Dosage: 20 MG, PRN
     Route: 042
     Dates: start: 20201211, end: 20210108
  85. GODEX [Concomitant]
     Indication: PROPHYLAXIS
     Dosage: 2 DF, TID
     Route: 048
     Dates: start: 20201215, end: 20210121
  86. SANCUSO [GRANISETRON] [Concomitant]
     Indication: VOMITING
  87. PHOSTEN [Concomitant]
     Indication: HYPOPHOSPHATAEMIA
     Dosage: 20 ML, PRN
     Route: 042
     Dates: start: 20201230, end: 20210101
  88. MACPERAN [METOCLOPRAMIDE] [Concomitant]
     Indication: NAUSEA
     Dosage: 10 MG, PRN
     Route: 042
     Dates: start: 20201231, end: 20210113
  89. DENOGAN [Concomitant]
     Active Substance: PROPACETAMOL HYDROCHLORIDE
     Indication: PYREXIA
     Dosage: 1000 MG, PRN
     Route: 042
     Dates: start: 20210103, end: 20210118
  90. MORPHINE SULFATE. [Concomitant]
     Active Substance: MORPHINE SULFATE
     Indication: ABDOMINAL PAIN
     Dosage: 30 MG, QOD
     Route: 042
     Dates: start: 20210115, end: 20210123
  91. FREEPAN [SCOPOLAMINE BUTYLBROMIDE] [Concomitant]
     Indication: HAEMOSTASIS
  92. IRRADIATED FILTERED APHARESIS PLATELET [Concomitant]
     Indication: PLATELET COUNT DECREASED
     Dosage: 1 UNIT, ONCE
     Route: 042
     Dates: start: 20210120, end: 20210120
  93. MEROPEN [MEROPENEM TRIHYDRATE] [Concomitant]
     Active Substance: MEROPENEM
     Indication: BACTERAEMIA
     Dosage: 1 G, TID
     Route: 042
     Dates: start: 20210116, end: 20210118
  94. OXALITIN [Suspect]
     Active Substance: OXALIPLATIN
     Indication: BILE DUCT CANCER
     Dosage: 50 MG/M2 (73.5 MG)
     Route: 042
     Dates: start: 20201211
  95. 5?FU [FLUOROURACIL] [Suspect]
     Active Substance: FLUOROURACIL
     Indication: BILE DUCT CANCER
     Dosage: 1500 MG/M2 (2205 MG)
     Route: 042
     Dates: start: 20201211
  96. URSA [URSODEOXYCHOLIC ACID] [Concomitant]
     Dosage: 300 MG, TID
     Route: 048
     Dates: start: 20210104, end: 20210113
  97. PENIRAMIN [Concomitant]
     Dosage: 4 MG, ONCE
     Route: 042
     Dates: start: 20210114, end: 20210114
  98. ATIVAN [Concomitant]
     Active Substance: LORAZEPAM
     Indication: PROPHYLAXIS
     Dosage: 0.5 MG, QD
     Route: 048
     Dates: start: 20210105
  99. TRIDOL [Concomitant]
     Active Substance: TRAMADOL HYDROCHLORIDE
     Indication: CATHETER PLACEMENT
  100. NEXIUM I.V. [Concomitant]
     Active Substance: ESOMEPRAZOLE SODIUM
     Dosage: 200 MG, QD
     Route: 042
     Dates: start: 20210122, end: 20210124
  101. FREEPAN [SCOPOLAMINE BUTYLBROMIDE] [Concomitant]
     Indication: OESOPHAGOGASTRODUODENOSCOPY
  102. FREEPAN [SCOPOLAMINE BUTYLBROMIDE] [Concomitant]
     Indication: PREMEDICATION
     Dosage: 40 MG, ONCE
     Route: 042
     Dates: start: 20210119, end: 20210119

REACTIONS (4)
  - Off label use [Unknown]
  - Sepsis [Fatal]
  - Disease progression [Fatal]
  - Hepatic failure [Fatal]

NARRATIVE: CASE EVENT DATE: 20210111
